FAERS Safety Report 6823942-6 (Version None)
Quarter: 2010Q3

REPORT INFORMATION
  Report Type: 
  Country: None (occurrence: None)
  Receive Date: 20100708
  Receipt Date: 20060928
  Transmission Date: 20110219
  Serious: No
  Sender: FDA-Public Use
  Company Number: US-PFIZER INC-2006118631

PATIENT
  Sex: Male
  Weight: 77.11 kg

DRUGS (11)
  1. CHANTIX [Suspect]
     Indication: SMOKING CESSATION THERAPY
     Dates: start: 20060101
  2. ATENOLOL [Concomitant]
  3. NORVASC [Concomitant]
  4. PLAVIX [Concomitant]
  5. GLUCOPHAGE [Concomitant]
  6. ACTOS [Concomitant]
  7. CELEBREX [Concomitant]
  8. VICODIN [Concomitant]
  9. METHADONE [Concomitant]
  10. OMEPRAZOLE [Concomitant]
  11. CARAFATE [Concomitant]

REACTIONS (4)
  - EYE IRRITATION [None]
  - INSOMNIA [None]
  - PARAESTHESIA [None]
  - VISUAL IMPAIRMENT [None]
